FAERS Safety Report 7884502-1 (Version None)
Quarter: 2011Q4

REPORT INFORMATION
  Report Type: 
  Country: None (occurrence: None)
  Receive Date: 20111102
  Receipt Date: 20111027
  Transmission Date: 20120403
  Serious: Yes (Death, Hospitalization)
  Sender: FDA-Public Use
  Company Number: DE-CELGENEUS-062-50794-11102674

PATIENT
  Age: 82 Year
  Sex: Female
  Weight: 39 kg

DRUGS (2)
  1. VIDAZA [Suspect]
     Indication: ACUTE MYELOID LEUKAEMIA
     Dosage: 75 MILLIGRAM/SQ. METER
     Route: 058
     Dates: start: 20110221, end: 20110726
  2. BISOPROLOL [Concomitant]
     Route: 065

REACTIONS (2)
  - PANCYTOPENIA [None]
  - CEREBRAL HAEMORRHAGE [None]
